FAERS Safety Report 4969870-2 (Version None)
Quarter: 2006Q2

REPORT INFORMATION
  Report Type: 
  Country: None (occurrence: None)
  Receive Date: 20060406
  Receipt Date: 20060320
  Transmission Date: 20061013
  Serious: Yes (Hospitalization, Other)
  Sender: FDA-Public Use
  Company Number: US200603005281

PATIENT
  Sex: Male

DRUGS (1)
  1. PROZAC [Suspect]
     Indication: PAIN
     Dosage: ORAL
     Route: 048

REACTIONS (4)
  - CHEST PAIN [None]
  - CORONARY ARTERY OCCLUSION [None]
  - DEPRESSION [None]
  - DYSPNOEA [None]
